FAERS Safety Report 22280047 (Version 1)
Quarter: 2023Q2

REPORT INFORMATION
  Report Type: Report from Study
  Country: US (occurrence: US)
  Receive Date: 20230503
  Receipt Date: 20230503
  Transmission Date: 20230721
  Serious: Yes (Other)
  Sender: FDA-Public Use
  Company Number: US-ABBVIE-4747959

PATIENT

DRUGS (1)
  1. RINVOQ [Suspect]
     Active Substance: UPADACITINIB
     Indication: Product used for unknown indication
     Dosage: 45 MG
     Route: 048

REACTIONS (4)
  - Dizziness [Unknown]
  - Fatigue [Unknown]
  - Blood iron decreased [Unknown]
  - Anaphylactic reaction [Unknown]
